FAERS Safety Report 13372345 (Version 1)
Quarter: 2017Q1

REPORT INFORMATION
  Report Type: Spontaneous
  Country: US (occurrence: US)
  Receive Date: 20170327
  Receipt Date: 20170327
  Transmission Date: 20170429
  Serious: Yes (Other)
  Sender: FDA-Public Use
  Company Number: US-ACCORD-049568

PATIENT
  Age: 73 Year
  Sex: Male

DRUGS (4)
  1. DEXAMETHASONE. [Concomitant]
     Active Substance: DEXAMETHASONE
     Dosage: AT BEDTIME IN THE LEFT EYE
  2. MITOMYCIN. [Suspect]
     Active Substance: MITOMYCIN
     Indication: CONJUNCTIVAL NEOPLASM
     Dosage: 1 WEEK ON AND 1 WEEK OFF ADMINISTERED WITH A FOLLOW-UP EVERY 2 WEEKS
     Route: 061
  3. ACETAZOLAMIDE. [Concomitant]
     Active Substance: ACETAZOLAMIDE
     Route: 048
  4. TIMOLOL. [Concomitant]
     Active Substance: TIMOLOL
     Dosage: IN THE RIGHT EYE

REACTIONS (4)
  - Ocular hyperaemia [Unknown]
  - Dry eye [Unknown]
  - Eye pruritus [Unknown]
  - Eye irritation [Unknown]
